FAERS Safety Report 26007067 (Version 1)
Quarter: 2025Q4

REPORT INFORMATION
  Report Type: Spontaneous
  Country: EU (occurrence: EU)
  Receive Date: 20251106
  Receipt Date: 20251106
  Transmission Date: 20260117
  Serious: Yes (Hospitalization)
  Sender: FRESENIUS KABI
  Company Number: None

PATIENT
  Age: 79 Year
  Sex: Male
  Weight: 94 kg

DRUGS (11)
  1. ACETAMINOPHEN [Suspect]
     Active Substance: ACETAMINOPHEN
     Indication: Pain
     Route: 042
     Dates: start: 20250208, end: 20250209
  2. METAMIZOLE SODIUM [Suspect]
     Active Substance: METAMIZOLE SODIUM
     Indication: Pain
     Route: 042
     Dates: start: 20250207, end: 20250209
  3. PREGABALIN [Concomitant]
     Active Substance: PREGABALIN
     Indication: Pain
     Dosage: THERAPY ONGOING
     Route: 048
     Dates: start: 20250207
  4. DEMEZON [Concomitant]
     Indication: Pain
     Dosage: THERAPY ONGOING
     Route: 048
     Dates: start: 20250207
  5. Oxydolor [Concomitant]
     Indication: Pain
     Dosage: THERAPY ONGOING
     Route: 048
     Dates: start: 20250207
  6. LEVOFLOXACIN [Concomitant]
     Active Substance: LEVOFLOXACIN
     Indication: Urinary tract disorder
     Route: 048
     Dates: start: 20250208, end: 20250211
  7. GALANTAMINE HYDROBROMIDE [Concomitant]
     Active Substance: GALANTAMINE HYDROBROMIDE
     Indication: Peripheral nerve lesion
     Route: 042
     Dates: start: 20250207, end: 20250212
  8. NALDEMEDINE TOSYLATE [Concomitant]
     Active Substance: NALDEMEDINE TOSYLATE
     Indication: Product used for unknown indication
  9. SOLINCO [Concomitant]
     Indication: Product used for unknown indication
  10. BIBLOC [Concomitant]
     Indication: Product used for unknown indication
  11. ENOXAPARIN SODIUM [Concomitant]
     Active Substance: ENOXAPARIN SODIUM
     Indication: Product used for unknown indication

REACTIONS (1)
  - Agranulocytosis [Unknown]

NARRATIVE: CASE EVENT DATE: 20250210
